FAERS Safety Report 8982966 (Version 2)
Quarter: 2013Q1

REPORT INFORMATION
  Report Type: Spontaneous
  Country: US (occurrence: US)
  Receive Date: 20121224
  Receipt Date: 20130329
  Transmission Date: 20140127
  Serious: Yes (Hospitalization)
  Sender: FDA-Public Use
  Company Number: PHEH2012US025066

PATIENT
  Sex: Female

DRUGS (3)
  1. CLOZARIL [Suspect]
     Dosage: UNK UKN, UNK
  2. CLOZARIL [Suspect]
     Dosage: 400 MG, BEDTIME
  3. CLOZAPINE [Suspect]
     Dosage: UNK
     Dates: start: 2005

REACTIONS (1)
  - Psychotic disorder [Recovered/Resolved]
